FAERS Safety Report 17286882 (Version 1)
Quarter: 2020Q1

REPORT INFORMATION
  Report Type: Spontaneous
  Country: ES (occurrence: ES)
  Receive Date: 20200120
  Receipt Date: 20200120
  Transmission Date: 20200409
  Serious: Yes (Hospitalization)
  Sender: FDA-Public Use
  Company Number: ES-AUROBINDO-AUR-APL-2020-002912

PATIENT
  Age: 86 Year
  Sex: Female

DRUGS (2)
  1. EPLERENONE. [Interacting]
     Active Substance: EPLERENONE
     Indication: CARDIAC FAILURE
     Dosage: UNK (0-1-0)
     Route: 048
     Dates: start: 20130601, end: 20190817
  2. FUROSEMIDE. [Suspect]
     Active Substance: FUROSEMIDE
     Indication: CARDIAC FAILURE
     Dosage: 120 MILLIGRAM, ONCE A DAY (2-1-0)
     Route: 048
     Dates: start: 20190808, end: 20190817

REACTIONS (1)
  - Hyponatraemia [Recovered/Resolved]

NARRATIVE: CASE EVENT DATE: 20190817
